FAERS Safety Report 17733757 (Version 1)
Quarter: 2020Q2

REPORT INFORMATION
  Report Type: Spontaneous
  Country: GR (occurrence: GR)
  Receive Date: 20200501
  Receipt Date: 20200501
  Transmission Date: 20200714
  Serious: Yes (Hospitalization)
  Sender: FDA-Public Use
  Company Number: NVSC2020GR117174

PATIENT
  Age: 75 Year
  Sex: Male

DRUGS (2)
  1. TERIPARATIDE [Suspect]
     Active Substance: TERIPARATIDE
     Indication: OSTEOPOROSIS
     Dosage: 20 UG, 1X/DAY
     Route: 058
     Dates: start: 20190425, end: 201910
  2. AMLODIPINE BESILATE,OLMESARTAN MEDOXOMIL [Suspect]
     Active Substance: AMLODIPINE BESYLATE\OLMESARTAN MEDOXOMIL
     Indication: HYPERTENSION
     Route: 065

REACTIONS (8)
  - Inflammation [Unknown]
  - Blood sodium decreased [Unknown]
  - Blood iron decreased [Unknown]
  - Peripheral swelling [Recovering/Resolving]
  - Dry mouth [Recovering/Resolving]
  - Laboratory test abnormal [Unknown]
  - Haematocrit decreased [Unknown]
  - Blood potassium decreased [Unknown]

NARRATIVE: CASE EVENT DATE: 20190616
